FAERS Safety Report 7340649-X (Version None)
Quarter: 2011Q1

REPORT INFORMATION
  Report Type: 
  Country: None (occurrence: None)
  Receive Date: 20110309
  Receipt Date: 20110223
  Transmission Date: 20110831
  Serious: Yes (Death)
  Sender: FDA-Public Use
  Company Number: GB-ROCHE-754368

PATIENT
  Age: 71 Year
  Sex: Male
  Weight: 78 kg

DRUGS (3)
  1. AVASTIN [Suspect]
     Route: 065
     Dates: start: 20101208, end: 20101208
  2. CAPECITABINE [Suspect]
     Route: 065
     Dates: start: 20101208, end: 20101231
  3. OXALIPLATIN [Suspect]
     Route: 065
     Dates: start: 20101209, end: 20101209

REACTIONS (1)
  - GASTROINTESTINAL PERFORATION [None]
